FAERS Safety Report 9355166 (Version 1)
Quarter: 2013Q2

REPORT INFORMATION
  Report Type: Spontaneous
  Country: FR (occurrence: FR)
  Receive Date: 20130619
  Receipt Date: 20130619
  Transmission Date: 20140414
  Serious: Yes (Other)
  Sender: FDA-Public Use
  Company Number: PHHY2013FR054169

PATIENT
  Age: 35 Year
  Sex: Male
  Weight: 86 kg

DRUGS (6)
  1. EXTAVIA [Suspect]
     Indication: MULTIPLE SCLEROSIS
     Dosage: 4 MIU, QOD
     Route: 058
     Dates: start: 20130404, end: 20130406
  2. EXTAVIA [Suspect]
     Dosage: 8 MIU, QOD (250 MCG, 3 TIMES A WEEK)
     Route: 058
     Dates: start: 20130407, end: 201304
  3. EXTAVIA [Suspect]
     Dosage: 4 MIU, QOD
     Route: 058
     Dates: start: 201304
  4. EXTAVIA [Suspect]
     Dosage: 8 MIU, QOD
     Route: 058
     Dates: start: 201304
  5. ZYMAD [Concomitant]
     Dosage: 80000 IU, UNK
     Route: 048
     Dates: start: 20130407
  6. DAFALGAN [Concomitant]
     Dosage: 500 MG, UNK
     Route: 048
     Dates: start: 20130407

REACTIONS (5)
  - Urinary retention [Recovering/Resolving]
  - Dysuria [Not Recovered/Not Resolved]
  - Fatigue [Recovering/Resolving]
  - Constipation [Recovering/Resolving]
  - Oropharyngeal pain [Unknown]
